FAERS Safety Report 20305766 (Version 1)
Quarter: 2022Q1

REPORT INFORMATION
  Report Type: Spontaneous
  Country: US (occurrence: None)
  Receive Date: 20220106
  Receipt Date: 20220106
  Transmission Date: 20220423
  Serious: No
  Sender: FDA-Public Use
  Company Number: None

PATIENT
  Age: 53 Year
  Sex: Female
  Weight: 99 kg

DRUGS (2)
  1. RUXIENCE [Suspect]
     Active Substance: RITUXIMAB-PVVR
     Dates: start: 20211124, end: 20211218
  2. RUXIENCE [Suspect]
     Active Substance: RITUXIMAB-PVVR
     Dates: start: 20211208

REACTIONS (1)
  - Generalised oedema [None]

NARRATIVE: CASE EVENT DATE: 20211208
